FAERS Safety Report 7611715-6 (Version None)
Quarter: 2011Q3

REPORT INFORMATION
  Report Type: 
  Country: None (occurrence: None)
  Receive Date: 20110715
  Receipt Date: 20110704
  Transmission Date: 20111222
  Serious: Yes (Other)
  Sender: FDA-Public Use
  Company Number: DE-AMGEN-DEUSP2011024484

PATIENT
  Age: 62 Year
  Sex: Female
  Weight: 72 kg

DRUGS (4)
  1. MCP                                /00041901/ [Concomitant]
     Dosage: UNK UNK, ONE TIME DOSE
  2. VECTIBIX [Suspect]
     Indication: COLON CANCER
     Dosage: 400 MG, Q2WK
     Route: 042
     Dates: start: 20110414
  3. TAVEGIL                            /00137201/ [Concomitant]
     Dosage: UNK UNK, ONE TIME DOSE
  4. RANITIDINE [Concomitant]
     Dosage: UNK UNK, ONE TIME DOSE

REACTIONS (7)
  - SKIN HAEMORRHAGE [None]
  - RASH [None]
  - DERMATITIS ACNEIFORM [None]
  - ERYTHEMA [None]
  - EXCORIATION [None]
  - SKIN REACTION [None]
  - FACE OEDEMA [None]
